FAERS Safety Report 8219827-3 (Version None)
Quarter: 2012Q1

REPORT INFORMATION
  Report Type: 
  Country: None (occurrence: None)
  Receive Date: 20120319
  Receipt Date: 20120314
  Transmission Date: 20120608
  Serious: Yes (Other)
  Sender: FDA-Public Use
  Company Number: CHPA2012US004851

PATIENT
  Age: 81 Year
  Sex: Female

DRUGS (1)
  1. VOLTAREN [Suspect]
     Indication: OEDEMA
     Dosage: UNK, EVERYDAY
     Route: 061

REACTIONS (8)
  - THERAPEUTIC RESPONSE UNEXPECTED [None]
  - WRONG TECHNIQUE IN DRUG USAGE PROCESS [None]
  - DRUG ADMINISTERED AT INAPPROPRIATE SITE [None]
  - DRUG INEFFECTIVE FOR UNAPPROVED INDICATION [None]
  - ATRIAL FIBRILLATION [None]
  - ATRIAL FLUTTER [None]
  - BURNING SENSATION [None]
  - INSOMNIA [None]
